FAERS Safety Report 6403042-X (Version None)
Quarter: 2009Q4

REPORT INFORMATION
  Report Type: 
  Country: None (occurrence: None)
  Receive Date: 20091015
  Receipt Date: 20091015
  Transmission Date: 20100525
  Serious: Yes (Disabling)
  Sender: FDA-Public Use
  Company Number: None

PATIENT
  Age: 55 Year
  Sex: Female
  Weight: 68.0396 kg

DRUGS (2)
  1. INDOCYANINE GREEN [Suspect]
     Dosage: 25 MG IV
     Route: 042
     Dates: start: 20081223
  2. INDOCYANINE GREEN [Suspect]
     Dosage: 25 MG IV
     Route: 042
     Dates: start: 20090127

REACTIONS (2)
  - OPTIC NERVE DISORDER [None]
  - RETINAL INJURY [None]
